FAERS Safety Report 7787975-8 (Version None)
Quarter: 2011Q3

REPORT INFORMATION
  Report Type: 
  Country: None (occurrence: None)
  Receive Date: 20110930
  Receipt Date: 20110926
  Transmission Date: 20111222
  Serious: No
  Sender: FDA-Public Use
  Company Number: US-BIOGENIDEC-2011BI036960

PATIENT
  Age: 45 Year
  Sex: Female

DRUGS (2)
  1. TYSABRI [Suspect]
     Indication: MULTIPLE SCLEROSIS
     Route: 042
     Dates: start: 20100901
  2. TRILEPTAL [Concomitant]
     Indication: TRIGEMINAL NEURALGIA

REACTIONS (3)
  - TRIGEMINAL NEURALGIA [None]
  - FATIGUE [None]
  - PARAESTHESIA [None]
